FAERS Safety Report 12956074 (Version 1)
Quarter: 2016Q4

REPORT INFORMATION
  Report Type: Spontaneous
  Country: US (occurrence: US)
  Receive Date: 20161118
  Receipt Date: 20161118
  Transmission Date: 20170207
  Serious: No
  Sender: FDA-Public Use
  Company Number: US-JNJFOC-20161008427

PATIENT
  Age: 72 Year
  Sex: Male
  Weight: 72.58 kg

DRUGS (1)
  1. TYLENOL REGULAR STRENGTH [Suspect]
     Active Substance: ACETAMINOPHEN
     Indication: BACK PAIN
     Dosage: 1-2 GELCAPS 4-6 HOURS
     Route: 048

REACTIONS (1)
  - Blood pressure increased [Not Recovered/Not Resolved]
